FAERS Safety Report 6648533-1 (Version None)
Quarter: 2010Q1

REPORT INFORMATION
  Report Type: 
  Country: None (occurrence: None)
  Receive Date: 20100319
  Receipt Date: 20100313
  Transmission Date: 20100710
  Serious: Yes (Other)
  Sender: FDA-Public Use
  Company Number: 2010SP016087

PATIENT
  Age: 12 Year
  Sex: Male

DRUGS (2)
  1. NOXAFIL [Suspect]
     Indication: ANTIFUNGAL PROPHYLAXIS
     Dates: start: 20100312
  2. NOXAFIL [Suspect]
     Indication: ANTIFUNGAL PROPHYLAXIS
     Dates: start: 20100313

REACTIONS (2)
  - DIARRHOEA [None]
  - GASTROINTESTINAL HAEMORRHAGE [None]
